FAERS Safety Report 5861917-4 (Version None)
Quarter: 2008Q3

REPORT INFORMATION
  Report Type: 
  Country: None (occurrence: None)
  Receive Date: 20080827
  Receipt Date: 20080715
  Transmission Date: 20090109
  Serious: No
  Sender: FDA-Public Use
  Company Number: US-ABBOTT-08P-163-0462765-00

PATIENT
  Sex: Male

DRUGS (2)
  1. NIASPAN [Suspect]
     Indication: BLOOD TRIGLYCERIDES INCREASED
     Route: 048
     Dates: start: 20080520, end: 20080701
  2. METOCLOPRAMIDE [Concomitant]
     Indication: GASTROINTESTINAL DISORDER

REACTIONS (3)
  - FLUSHING [None]
  - IRRITABLE BOWEL SYNDROME [None]
  - STOMACH DISCOMFORT [None]
